FAERS Safety Report 16733818 (Version 2)
Quarter: 2019Q4

REPORT INFORMATION
  Report Type: Spontaneous
  Country: US (occurrence: US)
  Receive Date: 20190823
  Receipt Date: 20191118
  Transmission Date: 20200122
  Serious: No
  Sender: FDA-Public Use
  Company Number: PHEH2019US034746

PATIENT
  Sex: Female

DRUGS (2)
  1. PROMACTA [Suspect]
     Active Substance: ELTROMBOPAG OLAMINE
     Dosage: 75 MG, QD
     Route: 048
     Dates: start: 20190514
  2. PROMACTA [Suspect]
     Active Substance: ELTROMBOPAG OLAMINE
     Indication: THROMBOCYTOPENIA
     Dosage: 75 MG, QD
     Route: 048
     Dates: start: 20190514

REACTIONS (5)
  - Anogenital warts [Unknown]
  - Red blood cell count decreased [Unknown]
  - Fatigue [Unknown]
  - White blood cell count decreased [Unknown]
  - Pain in extremity [Unknown]
